FAERS Safety Report 9526971 (Version 1)
Quarter: 2013Q3

REPORT INFORMATION
  Report Type: Spontaneous
  Country: CA (occurrence: CA)
  Receive Date: 20130916
  Receipt Date: 20130916
  Transmission Date: 20140515
  Serious: Yes (Other)
  Sender: FDA-Public Use
  Company Number: CHPA2013CA014101

PATIENT
  Age: 74 Year
  Sex: Female

DRUGS (3)
  1. EXCEDRIN TENSION HEADACHE [Suspect]
     Indication: MIGRAINE
     Dosage: 1 DF, UNK
     Route: 048
     Dates: start: 1993, end: 201309
  2. GABAPENTIN [Concomitant]
     Dosage: UNK
  3. OXYCODONE [Concomitant]
     Indication: PAIN
     Dosage: 5 MG, 1-2 TIMES A DAY
     Route: 048

REACTIONS (3)
  - Neoplasm malignant [Recovering/Resolving]
  - Therapeutic response unexpected [Unknown]
  - Off label use [Unknown]
